FAERS Safety Report 9426041 (Version 1)
Quarter: 2013Q3

REPORT INFORMATION
  Report Type: Report from Study
  Country: JP (occurrence: JP)
  Receive Date: 20130730
  Receipt Date: 20130730
  Transmission Date: 20140515
  Serious: Yes (Other)
  Sender: FDA-Public Use
  Company Number: JP-ROCHE-GNE305584

PATIENT
  Age: 73 Year
  Sex: Male

DRUGS (6)
  1. RANIBIZUMAB [Suspect]
     Indication: AGE-RELATED MACULAR DEGENERATION
     Dosage: 0.05 ML, UNK
     Route: 050
     Dates: start: 20090623
  2. RANIBIZUMAB [Suspect]
     Dosage: 0.05 ML, UNK
     Route: 050
     Dates: start: 20090728
  3. RANIBIZUMAB [Suspect]
     Dosage: 0.05 ML, UNK
     Route: 050
     Dates: start: 20090825
  4. RANIBIZUMAB [Suspect]
     Dosage: 0.05 ML, UNK
     Route: 050
     Dates: start: 20091009
  5. RANIBIZUMAB [Suspect]
     Dosage: 0.05 ML, UNK
     Route: 050
     Dates: start: 20091127
  6. CRAVIT [Concomitant]
     Indication: PRODUCT USED FOR UNKNOWN INDICATION
     Dosage: UNK
     Route: 065
     Dates: start: 200906, end: 200911

REACTIONS (1)
  - Vitreous haemorrhage [Unknown]
